FAERS Safety Report 5330828-5 (Version None)
Quarter: 2007Q2

REPORT INFORMATION
  Report Type: 
  Country: None (occurrence: None)
  Receive Date: 20070518
  Receipt Date: 20070518
  Transmission Date: 20071010
  Serious: No
  Sender: FDA-Public Use
  Company Number: None

PATIENT
  Age: 64 Year
  Sex: Female

DRUGS (2)
  1. BUPROPION HCL [Suspect]
     Dosage: 300MGS 300MG QD P.O.
     Route: 048
     Dates: start: 20061222, end: 20070119
  2. EFFEXOR XR [Suspect]

REACTIONS (1)
  - THERAPEUTIC RESPONSE UNEXPECTED WITH DRUG SUBSTITUTION [None]
